FAERS Safety Report 8333007-2 (Version None)
Quarter: 2012Q1

REPORT INFORMATION
  Report Type: 
  Country: None (occurrence: None)
  Receive Date: 20120327
  Receipt Date: 20110211
  Transmission Date: 20120608
  Serious: Yes (Other)
  Sender: FDA-Public Use
  Company Number: PHHY2011US10904

PATIENT

DRUGS (1)
  1. GLEEVEC [Suspect]
     Dosage: ORAL
     Route: 048

REACTIONS (1)
  - TREATMENT FAILURE [None]
